FAERS Safety Report 23403597 (Version 2)
Quarter: 2024Q1

REPORT INFORMATION
  Report Type: Other
  Country: ES (occurrence: ES)
  Receive Date: 20240116
  Receipt Date: 20240305
  Transmission Date: 20240409
  Serious: Yes (Death, Hospitalization)
  Sender: FDA-Public Use
  Company Number: ES-ROCHE-3490088

PATIENT
  Age: 65 Year
  Sex: Female

DRUGS (5)
  1. BEVACIZUMAB [Suspect]
     Active Substance: BEVACIZUMAB
     Indication: Ovarian cancer stage IV
     Route: 065
  2. CARBOPLATIN [Suspect]
     Active Substance: CARBOPLATIN
     Indication: Ovarian cancer stage IV
     Dosage: LAST OF THE CYCLES IN NOV/2019
     Route: 065
  3. PACLITAXEL [Suspect]
     Active Substance: PACLITAXEL
     Indication: Ovarian cancer stage IV
     Dosage: LAST OF THE CYCLES IN NOV/2019
     Route: 065
  4. PACLITAXEL [Suspect]
     Active Substance: PACLITAXEL
     Route: 065
  5. DOXORUBICIN [Suspect]
     Active Substance: DOXORUBICIN
     Indication: Ovarian cancer stage IV
     Route: 065

REACTIONS (3)
  - Metastases to oesophagus [Fatal]
  - Disease progression [Fatal]
  - Oesophageal candidiasis [Unknown]
